FAERS Safety Report 7020785-8 (Version None)
Quarter: 2010Q3

REPORT INFORMATION
  Report Type: 
  Country: None (occurrence: None)
  Receive Date: 20100929
  Receipt Date: 20100920
  Transmission Date: 20110219
  Serious: Yes (Hospitalization)
  Sender: FDA-Public Use
  Company Number: FR-PFIZER INC-2010120355

PATIENT
  Age: 14 Year
  Sex: Female

DRUGS (2)
  1. ATARAX [Suspect]
     Dosage: 750 MG, UNK
     Route: 048
     Dates: start: 20100831, end: 20100831
  2. SERESTA [Suspect]
     Dosage: 300 MG, UNK
     Route: 048
     Dates: start: 20100831, end: 20100831

REACTIONS (1)
  - POISONING [None]
